FAERS Safety Report 9014717 (Version 1)
Quarter: 2013Q1

REPORT INFORMATION
  Report Type: Other
  Country: GB (occurrence: GB)
  Receive Date: 20130115
  Receipt Date: 20130115
  Transmission Date: 20140127
  Serious: Yes (Other)
  Sender: FDA-Public Use
  Company Number: GB-WATSON-2013-00310

PATIENT
  Age: 26 Year
  Sex: 0
  Weight: 66 kg

DRUGS (3)
  1. DIAZEPAM (UNKNOWN) [Suspect]
     Indication: VOMITING
     Dosage: 30MG
     Route: 048
     Dates: start: 20121217, end: 20121217
  2. METHADONE [Suspect]
     Indication: VOMITING
     Dosage: 100ML
     Route: 048
     Dates: start: 20121217, end: 20121217
  3. ZOLPIDEM TARTRATE [Concomitant]
     Indication: PRODUCT USED FOR UNKNOWN INDICATION
     Dosage: UNKNOWN
     Route: 065

REACTIONS (7)
  - Confusional state [Not Recovered/Not Resolved]
  - Fatigue [Not Recovered/Not Resolved]
  - Aggression [Not Recovered/Not Resolved]
  - Incoherent [Not Recovered/Not Resolved]
  - Dysstasia [Not Recovered/Not Resolved]
  - Balance disorder [Not Recovered/Not Resolved]
  - Condition aggravated [Not Recovered/Not Resolved]
